FAERS Safety Report 11729009 (Version 1)
Quarter: 2015Q4

REPORT INFORMATION
  Report Type: Spontaneous
  Country: US (occurrence: US)
  Receive Date: 20151112
  Receipt Date: 20151112
  Transmission Date: 20160304
  Serious: No
  Sender: FDA-Public Use
  Company Number: US-SHIRE-US201513986

PATIENT
  Sex: Female

DRUGS (7)
  1. LATANOPROST. [Concomitant]
     Active Substance: LATANOPROST
     Indication: GLAUCOMA
     Dosage: 1 GTT (.05%), 1X/DAY:QD (EACH EYE AT NIGHT)
     Route: 047
  2. COMBIGAN [Concomitant]
     Active Substance: BRIMONIDINE TARTRATE\TIMOLOL MALEATE
     Indication: GLAUCOMA
     Dosage: 1 GTT (.2 TO .5%), 3X/DAY:TID (FOR EACH EYE)
     Route: 047
     Dates: start: 2009
  3. LOMOTIL                            /00384302/ [Concomitant]
     Active Substance: LOPERAMIDE HYDROCHLORIDE
     Indication: COLITIS ULCERATIVE
     Dosage: 2.5 MG, 1X/DAY:QD
     Route: 048
  4. LIALDA [Suspect]
     Active Substance: MESALAMINE
     Indication: COLITIS ULCERATIVE
     Dosage: 1.2 G, 1X/DAY:QD (BREAKFAST)
     Route: 048
     Dates: start: 201407, end: 201408
  5. TRUSOPT [Concomitant]
     Active Substance: DORZOLAMIDE HYDROCHLORIDE
     Indication: GLAUCOMA
     Dosage: 1 GTT (2%), 3X/DAY:TID (LEFT EYE)
     Route: 047
  6. LOMOTIL                            /00384302/ [Concomitant]
     Active Substance: LOPERAMIDE HYDROCHLORIDE
     Indication: DIARRHOEA
  7. LIALDA [Suspect]
     Active Substance: MESALAMINE
     Dosage: 1.2 G, 2X/DAY:BID (ONE TABLET INT THE MORNING AND ONE TABLET AT NIGHT)
     Route: 048
     Dates: start: 20151109

REACTIONS (7)
  - Fatigue [Unknown]
  - Inappropriate schedule of drug administration [Not Recovered/Not Resolved]
  - Product quality issue [Unknown]
  - Gastrointestinal sounds abnormal [Recovered/Resolved]
  - Influenza like illness [Unknown]
  - Expired product administered [Not Recovered/Not Resolved]
  - Gastric disorder [Recovered/Resolved]

NARRATIVE: CASE EVENT DATE: 201408
